FAERS Safety Report 7635570-3 (Version None)
Quarter: 2011Q3

REPORT INFORMATION
  Report Type: 
  Country: None (occurrence: None)
  Receive Date: 20110726
  Receipt Date: 20110711
  Transmission Date: 20111222
  Serious: Yes (Other)
  Sender: FDA-Public Use
  Company Number: PHHY2011BR61943

PATIENT
  Sex: Male

DRUGS (2)
  1. DIOVAN [Suspect]
     Dosage: 80 MG, UNK
     Route: 065
  2. TRILEPTAL [Suspect]
     Dosage: 300 MG, UNK
     Route: 065

REACTIONS (1)
  - DIABETES MELLITUS [None]
